FAERS Safety Report 20332738 (Version 6)
Quarter: 2024Q1

REPORT INFORMATION
  Report Type: Spontaneous
  Country: US (occurrence: US)
  Receive Date: 20220113
  Receipt Date: 20240321
  Transmission Date: 20240410
  Serious: Yes (Disabling, Other)
  Sender: FDA-Public Use
  Company Number: US-SANOFI-00927223

PATIENT
  Age: 83 Year
  Sex: Female

DRUGS (2)
  1. LANTUS SOLOSTAR [Suspect]
     Active Substance: INSULIN GLARGINE
     Indication: Type 2 diabetes mellitus
     Dosage: 35 IU, QD, AT BEDTIME
  2. LANTUS SOLOSTAR [Suspect]
     Active Substance: INSULIN GLARGINE
     Dosage: 30 IU, QD

REACTIONS (10)
  - Blindness unilateral [Unknown]
  - Visual impairment [Unknown]
  - Disability [Unknown]
  - Gait disturbance [Unknown]
  - Hypoacusis [Unknown]
  - Fall [Unknown]
  - Back injury [Unknown]
  - Memory impairment [Unknown]
  - Nervousness [Unknown]
  - Product storage error [Unknown]
